FAERS Safety Report 5951059-1 (Version None)
Quarter: 2008Q4

REPORT INFORMATION
  Report Type: 
  Country: None (occurrence: None)
  Receive Date: 20081112
  Receipt Date: 20081112
  Transmission Date: 20090506
  Serious: Yes (Other)
  Sender: FDA-Public Use
  Company Number: None

PATIENT

DRUGS (2)
  1. CEFAZOLIN [Suspect]
     Dosage: 1 GRAM IV Q8
     Route: 042
     Dates: start: 20081109, end: 20081110
  2. CEFOXITIN [Suspect]
     Dosage: 2 GRAMS IV Q8
     Route: 042
     Dates: start: 20081109, end: 20081110

REACTIONS (1)
  - MEDICATION ERROR [None]
